FAERS Safety Report 8212552-4 (Version None)
Quarter: 2012Q1

REPORT INFORMATION
  Report Type: 
  Country: None (occurrence: None)
  Receive Date: 20120315
  Receipt Date: 20120307
  Transmission Date: 20120608
  Serious: No
  Sender: FDA-Public Use
  Company Number: US-BAYER-2012-023559

PATIENT
  Age: 30 Year
  Sex: Female

DRUGS (6)
  1. CYCLOBENZAPRINE HCL [Concomitant]
     Dosage: UNK
  2. NITROFURANTOIN [Concomitant]
  3. DICYCLOMINE [Concomitant]
  4. MIRALAX [Concomitant]
  5. YAZ [Suspect]
     Dosage: UNK
  6. OMEPRAZOLE [Concomitant]

REACTIONS (1)
  - THROMBOPHLEBITIS SUPERFICIAL [None]
